FAERS Safety Report 19981473 (Version 8)
Quarter: 2022Q1

REPORT INFORMATION
  Report Type: Report from Study
  Country: US (occurrence: US)
  Receive Date: 20211021
  Receipt Date: 20220222
  Transmission Date: 20220423
  Serious: Yes (Hospitalization, Other)
  Sender: FDA-Public Use
  Company Number: NVSC2021US234426

PATIENT
  Sex: Male

DRUGS (12)
  1. ENTRESTO [Suspect]
     Active Substance: SACUBITRIL\VALSARTAN
     Indication: Product used for unknown indication
     Dosage: 1 DF (24/26 MG), BID
     Route: 048
     Dates: start: 202107
  2. METOPROLOL [Suspect]
     Active Substance: METOPROLOL
     Indication: Product used for unknown indication
     Dosage: UNK, BID
     Route: 065
  3. METOPROLOL [Suspect]
     Active Substance: METOPROLOL
     Dosage: UNK, QD
     Route: 065
  4. METOPROLOL [Suspect]
     Active Substance: METOPROLOL
     Dosage: UNK, BID
     Route: 065
  5. METOPROLOL [Suspect]
     Active Substance: METOPROLOL
     Route: 065
  6. PAROXETINE [Suspect]
     Active Substance: PAROXETINE
     Indication: Product used for unknown indication
     Route: 065
  7. TRAMADOL [Suspect]
     Active Substance: TRAMADOL
     Indication: Product used for unknown indication
     Route: 065
  8. TADALAFIL [Suspect]
     Active Substance: TADALAFIL
     Indication: Product used for unknown indication
     Dosage: UNK, UNKNOWN
     Route: 065
  9. TADALAFIL [Suspect]
     Active Substance: TADALAFIL
     Route: 065
  10. TRAZODONE [Suspect]
     Active Substance: TRAZODONE HYDROCHLORIDE
     Indication: Insomnia
     Route: 065
  11. UNSPECIFIED INGREDIENT [Suspect]
     Active Substance: UNSPECIFIED INGREDIENT
     Indication: Product used for unknown indication
     Route: 065
  12. ELIQUIS [Concomitant]
     Active Substance: APIXABAN
     Indication: Product used for unknown indication
     Route: 065

REACTIONS (17)
  - Atrial fibrillation [Recovered/Resolved]
  - Oedema peripheral [Unknown]
  - Ejection fraction decreased [Unknown]
  - Loss of consciousness [Unknown]
  - Heart rate increased [Unknown]
  - Stress [Unknown]
  - Anxiety disorder [Unknown]
  - Dyspnoea exertional [Recovered/Resolved]
  - Chest pain [Unknown]
  - Weight increased [Unknown]
  - Weight loss poor [Unknown]
  - Feeling abnormal [Unknown]
  - Insomnia [Recovering/Resolving]
  - Back pain [Unknown]
  - Back disorder [Unknown]
  - Visual impairment [Unknown]
  - Product dose omission issue [Unknown]
